FAERS Safety Report 9507572 (Version 1)
Quarter: 2013Q1

REPORT INFORMATION
  Report Type: Spontaneous
  Country: US (occurrence: None)
  Receive Date: 20130305
  Receipt Date: 20130305
  Transmission Date: 20140127
  Serious: Yes (Other)
  Sender: FDA-Public Use
  Company Number: 163-21880-1120338

PATIENT
  Age: 63 Year
  Sex: Male

DRUGS (18)
  1. REVLIMID (LENALIDOMIDE) (CAPSULES) [Suspect]
     Indication: MYELODYSPLASTIC SYNDROME
     Dosage: 10 MG, 21/7, PO
     Route: 048
     Dates: start: 20111108
  2. INSULIN (INSULIN) [Concomitant]
  3. ZOCOR (SIMVASTATIN) [Concomitant]
  4. DIGOXIN (DIGOXIN) [Concomitant]
  5. POTASSIUM (POTASSIUM) [Concomitant]
  6. LASIX (FUROSEMIDE) [Concomitant]
  7. REVATIO (SILDENAFIL CITRATE) (UNKNOWN) (SILDENAFIL) [Concomitant]
  8. LEVOXYL (LEVOTHYROXINE SODIUM) [Concomitant]
  9. ACIPHEX (RABEPRAZOLE SODIUM) [Concomitant]
  10. COREG (CARVEDILOL) [Concomitant]
  11. VITAMIN D (ERGOCALCIFEROL) [Concomitant]
  12. PLAVIX (CLOPIDOGREL SULFATE) [Concomitant]
  13. CENTRUM SILVER (CENTRUM SILVER) [Concomitant]
  14. VITAMAIN B6 (PYRIDOINE HYDROCHLORIDE) [Concomitant]
  15. VITAMIN B12 (CYANOCOBALAMIN) [Concomitant]
  16. FISH OIL (FISH OIL) [Concomitant]
  17. FLAGYL (METRONIDAZOLE) [Concomitant]
  18. DACOGEN (DECITABINE) [Concomitant]

REACTIONS (1)
  - Haemoglobin decreased [None]
